FAERS Safety Report 12444843 (Version 1)
Quarter: 2016Q2

REPORT INFORMATION
  Report Type: Spontaneous
  Country: CZ (occurrence: CZ)
  Receive Date: 20160607
  Receipt Date: 20160607
  Transmission Date: 20160815
  Serious: Yes (Hospitalization)
  Sender: FDA-Public Use
  Company Number: CZ-SA-2016SA101540

PATIENT
  Age: 76 Year
  Sex: Male

DRUGS (8)
  1. LINEZOLID. [Suspect]
     Active Substance: LINEZOLID
     Indication: ANTIBIOTIC THERAPY
     Route: 065
  2. HMG COA REDUCTASE INHIBITORS [Concomitant]
     Active Substance: UNSPECIFIED INGREDIENT
     Route: 065
     Dates: start: 2015
  3. ETHAMBUTOL DIHYDROCHLORIDE/ISONIAZID/RIFAMPICIN [Suspect]
     Active Substance: ETHAMBUTOL\ISONIAZID\RIFAMPIN
     Indication: ANTIBIOTIC THERAPY
     Route: 065
  4. CEFOTAXIME SODIUM [Suspect]
     Active Substance: CEFOTAXIME SODIUM
     Indication: ANTIBIOTIC THERAPY
     Route: 065
  5. BCG FOR IMMUNOTHERAPY [Suspect]
     Active Substance: BACILLUS CALMETTE-GUERIN ANTIGEN, UNSPECIFIED SUBSTRAIN
     Indication: BLADDER CANCER
     Route: 065
     Dates: start: 2015, end: 2015
  6. CIPROFLOXACIN. [Suspect]
     Active Substance: CIPROFLOXACIN
     Indication: ANTIBIOTIC THERAPY
     Route: 065
  7. AMIKACIN [Suspect]
     Active Substance: AMIKACIN
     Indication: ANTIBIOTIC THERAPY
     Route: 065
  8. GENTAMICIN SULFATE. [Suspect]
     Active Substance: GENTAMICIN SULFATE
     Indication: ANTIBIOTIC THERAPY
     Route: 065

REACTIONS (15)
  - Pneumonitis [Recovered/Resolved]
  - Hypokalaemia [Unknown]
  - Weight decreased [Recovered/Resolved]
  - Pyrexia [Recovered/Resolved]
  - C-reactive protein increased [Recovered/Resolved]
  - Clostridium difficile colitis [Recovered/Resolved]
  - Gastrointestinal wall thickening [Recovered/Resolved]
  - Cholangitis acute [Recovered/Resolved]
  - Cholestasis [Recovered/Resolved]
  - Hypersensitivity [Recovered/Resolved]
  - Blood albumin decreased [Recovered/Resolved]
  - Granulomatous liver disease [Recovered/Resolved]
  - Pneumonia [Recovered/Resolved]
  - Renal failure [Recovered/Resolved]
  - Diarrhoea [Recovered/Resolved]

NARRATIVE: CASE EVENT DATE: 2015
